FAERS Safety Report 14487572 (Version 1)
Quarter: 2018Q1

REPORT INFORMATION
  Report Type: Spontaneous
  Country: NL (occurrence: NL)
  Receive Date: 20180205
  Receipt Date: 20180205
  Transmission Date: 20180509
  Serious: Yes (Life-Threatening, Hospitalization)
  Sender: FDA-Public Use
  Company Number: NL-PFIZER INC-2018048929

PATIENT
  Age: 42 Year
  Sex: Female
  Weight: 60 kg

DRUGS (9)
  1. METRONIDAZOLE. [Concomitant]
     Active Substance: METRONIDAZOLE
  2. NAPROXEN. [Concomitant]
     Active Substance: NAPROXEN
  3. PROPOFOL. [Concomitant]
     Active Substance: PROPOFOL
  4. ALFENTANIL. [Concomitant]
     Active Substance: ALFENTANIL
  5. DOXYCYCLINE. [Concomitant]
     Active Substance: DOXYCYCLINE
  6. CEFOTAXIME [Suspect]
     Active Substance: CEFOTAXIME SODIUM
     Indication: PROPHYLAXIS
     Dosage: 1000 MG, 4X/DAY
     Dates: start: 20170711, end: 20170713
  7. PROMETHAZINE [Concomitant]
     Active Substance: PROMETHAZINE\PROMETHAZINE HYDROCHLORIDE
     Dosage: UNK, SINGLE
  8. MORPHINE [Concomitant]
     Active Substance: MORPHINE
     Dosage: 10 MG, UNK
  9. ONDANSETRON [Concomitant]
     Active Substance: ONDANSETRON

REACTIONS (5)
  - Swollen tongue [Recovered/Resolved]
  - Nausea [Recovered/Resolved]
  - Abdominal distension [Recovered/Resolved]
  - Blood pressure decreased [Recovered/Resolved]
  - Anaphylactic reaction [Recovered/Resolved]

NARRATIVE: CASE EVENT DATE: 20170713
